FAERS Safety Report 7171610-6 (Version None)
Quarter: 2010Q4

REPORT INFORMATION
  Report Type: 
  Country: None (occurrence: None)
  Receive Date: 20101217
  Receipt Date: 20101216
  Transmission Date: 20110411
  Serious: Yes (Hospitalization, Other)
  Sender: FDA-Public Use
  Company Number: US-ABBOTT-10P-163-0691050-00

PATIENT
  Sex: Male
  Weight: 85.806 kg

DRUGS (26)
  1. HUMIRA [Suspect]
     Indication: RHEUMATOID ARTHRITIS
     Route: 058
     Dates: start: 20100401, end: 20100601
  2. HUMIRA [Suspect]
     Route: 058
     Dates: start: 20101210
  3. OXYCODONE [Suspect]
     Indication: PAIN
     Route: 048
  4. AMLODIPINE [Concomitant]
     Indication: HYPERTENSION
     Route: 048
  5. AMBIEN [Concomitant]
     Indication: INSOMNIA
     Route: 048
  6. ASPIRIN [Concomitant]
     Indication: PRODUCT USED FOR UNKNOWN INDICATION
     Route: 048
  7. CYCLOBENZAPRINE [Concomitant]
     Indication: MUSCLE RELAXANT THERAPY
     Route: 048
  8. FENOFIBRATE [Concomitant]
     Indication: CARDIAC DISORDER
     Route: 048
  9. FLONASE [Concomitant]
     Indication: PRODUCT USED FOR UNKNOWN INDICATION
     Route: 030
  10. FLOVENT [Concomitant]
     Indication: BRONCHITIS
     Route: 055
  11. FOLIC ACID [Concomitant]
     Indication: PRODUCT USED FOR UNKNOWN INDICATION
     Route: 048
  12. GABAPENTIN [Concomitant]
     Indication: ANXIOLYTIC THERAPY
     Dosage: 200MG AM 600MG  PM
     Route: 048
  13. GABAPENTIN [Concomitant]
     Indication: INSOMNIA
  14. GABAPENTIN [Concomitant]
     Indication: DIABETIC NEUROPATHY
  15. HUMALOG [Concomitant]
     Indication: DIABETES MELLITUS
     Dosage: 37 UNITS IN AM, SLIDING SCALE IN PM
     Route: 058
  16. ISOSORBIDE MONO [Concomitant]
     Indication: CARDIAC DISORDER
     Route: 048
  17. LANTUS [Concomitant]
     Indication: DIABETES MELLITUS
     Dosage: 37 UNITS IN AM, SLIDING SCALE IN M
     Route: 058
  18. LIPITOR [Concomitant]
     Indication: BLOOD CHOLESTEROL
     Route: 048
  19. MAGNESIUM [Concomitant]
     Indication: MUSCLE SPASMS
     Route: 048
  20. MAGNESIUM [Concomitant]
     Indication: PROPHYLAXIS
  21. METOPROLOL [Concomitant]
     Indication: CARDIAC DISORDER
     Route: 048
  22. NIACIN [Concomitant]
     Indication: PRODUCT USED FOR UNKNOWN INDICATION
     Dosage: AT HOUR OF SLEEP
     Route: 048
  23. NITROGLYCERIN [Concomitant]
     Indication: CHEST PAIN
     Route: 060
  24. PANTOPRAZOLE [Concomitant]
     Indication: GASTROOESOPHAGEAL REFLUX DISEASE
     Route: 048
  25. TESTOSTERONE [Concomitant]
     Indication: BLOOD TESTOSTERONE DECREASED
     Route: 050
     Dates: start: 20080101
  26. TRAZODONE HCL [Concomitant]
     Indication: INSOMNIA
     Route: 048

REACTIONS (7)
  - ABDOMINAL PAIN [None]
  - COLITIS ULCERATIVE [None]
  - COLOSTOMY [None]
  - DISORIENTATION [None]
  - OVERDOSE [None]
  - RECTAL HAEMORRHAGE [None]
  - RED BLOOD CELL COUNT DECREASED [None]
